FAERS Safety Report 18191487 (Version 1)
Quarter: 2020Q3

REPORT INFORMATION
  Report Type: Not Available
  Country: None (occurrence: None)
  Receive Date: 20200825
  Receipt Date: 20200825
  Transmission Date: 20201103
  Serious: No
  Sender: FDA-Public Use
  Company Number: ROCHE-2664763

PATIENT
  Weight: 73 kg

DRUGS (1)
  1. XELODA [Suspect]
     Active Substance: CAPECITABINE
     Dates: start: 20200331, end: 20200510

REACTIONS (3)
  - Dermatitis bullous [None]
  - Hyperthermia [None]
  - Dyspnoea [None]

NARRATIVE: CASE EVENT DATE: 20200510
